FAERS Safety Report 5877709-6 (Version None)
Quarter: 2008Q3

REPORT INFORMATION
  Report Type: 
  Country: None (occurrence: None)
  Receive Date: 20080911
  Receipt Date: 20080901
  Transmission Date: 20090109
  Serious: Yes (Other)
  Sender: FDA-Public Use
  Company Number: BR-JNJFOC-20080900571

PATIENT
  Sex: Female

DRUGS (5)
  1. REMICADE [Suspect]
     Indication: ANAL FISTULA
     Route: 042
  2. REMICADE [Suspect]
     Indication: FEMALE GENITAL TRACT FISTULA
     Route: 042
  3. REMICADE [Suspect]
     Indication: RECTAL STENOSIS
     Route: 042
  4. REMICADE [Suspect]
     Indication: CROHN'S DISEASE
     Dosage: 1ST DOSE
     Route: 042
  5. AZATHIOPRINE [Concomitant]
     Route: 048

REACTIONS (5)
  - ASPHYXIA [None]
  - DIZZINESS [None]
  - HYPERHIDROSIS [None]
  - MALAISE [None]
  - TACHYCARDIA [None]
